FAERS Safety Report 5329822-X (Version None)
Quarter: 2007Q2

REPORT INFORMATION
  Report Type: 
  Country: None (occurrence: None)
  Receive Date: 20070521
  Receipt Date: 20070516
  Transmission Date: 20071010
  Serious: Yes (Hospitalization)
  Sender: FDA-Public Use
  Company Number: ES-BRISTOL-MYERS SQUIBB COMPANY-13775176

PATIENT
  Age: 65 Year
  Sex: Female

DRUGS (5)
  1. IRBESARTAN [Suspect]
     Indication: HYPERTENSION
  2. THIAZIDE [Suspect]
     Indication: HYPERTENSION
  3. ATENOLOL [Concomitant]
     Indication: ATRIAL FIBRILLATION
     Route: 048
  4. ACETYLSALICYLIC ACID SRT [Concomitant]
     Indication: ANTIPLATELET THERAPY
     Route: 048
  5. FLECAINIDE ACETATE [Concomitant]
     Indication: ATRIAL FIBRILLATION
     Route: 048

REACTIONS (2)
  - ATRIAL FIBRILLATION [None]
  - CORONARY ARTERY STENOSIS [None]
